FAERS Safety Report 16375322 (Version 6)
Quarter: 2020Q1

REPORT INFORMATION
  Report Type: Report from Study
  Country: None (occurrence: JP)
  Receive Date: 20190531
  Receipt Date: 20200218
  Transmission Date: 20200409
  Serious: Yes (Hospitalization, Disabling)
  Sender: FDA-Public Use
  Company Number: JP-ABBVIE-19S-087-2803566-00

PATIENT
  Age: 69 Year
  Sex: Female
  Weight: 49 kg

DRUGS (3)
  1. ROTIGOTINE [Concomitant]
     Active Substance: ROTIGOTINE
     Indication: PARKINSON^S DISEASE
     Route: 062
  2. ZONISAMIDE. [Concomitant]
     Active Substance: ZONISAMIDE
     Indication: PARKINSON^S DISEASE
     Route: 048
  3. DUODOPA [Suspect]
     Active Substance: CARBIDOPA\LEVODOPA
     Indication: PARKINSON^S DISEASE
     Dosage: MD: 8.5 ML?CD: 2.7 ML/HR ? 16 HRS?ED: 1 ML/UNIT ? 3 TIMES
     Route: 050
     Dates: start: 20190417, end: 20190610

REACTIONS (6)
  - Abdominal pain [Recovered/Resolved]
  - Spinal cord injury cervical [Recovered/Resolved with Sequelae]
  - Fall [Recovered/Resolved with Sequelae]
  - Device dislocation [Recovered/Resolved]
  - Therapeutic product effect incomplete [Recovered/Resolved]
  - Quadriplegia [Recovered/Resolved with Sequelae]

NARRATIVE: CASE EVENT DATE: 20190417
